FAERS Safety Report 7012636-2 (Version None)
Quarter: 2010Q3

REPORT INFORMATION
  Report Type: 
  Country: None (occurrence: None)
  Receive Date: 20100924
  Receipt Date: 20100915
  Transmission Date: 20110219
  Serious: Yes (Other)
  Sender: FDA-Public Use
  Company Number: JP-ROCHE-695145

PATIENT
  Sex: Female

DRUGS (12)
  1. TOCILIZUMAB [Suspect]
     Indication: RHEUMATOID ARTHRITIS
     Route: 042
     Dates: start: 20090617, end: 20090617
  2. TOCILIZUMAB [Suspect]
     Route: 042
     Dates: start: 20090716, end: 20090716
  3. TOCILIZUMAB [Suspect]
     Route: 042
     Dates: start: 20090811, end: 20090811
  4. TOCILIZUMAB [Suspect]
     Route: 042
     Dates: start: 20090910, end: 20090910
  5. TOCILIZUMAB [Suspect]
     Route: 042
     Dates: start: 20091008, end: 20091008
  6. TOCILIZUMAB [Suspect]
     Route: 042
     Dates: start: 20091112, end: 20091112
  7. TOCILIZUMAB [Suspect]
     Route: 042
     Dates: start: 20091217
  8. AZULFIDINE [Suspect]
     Indication: RHEUMATOID ARTHRITIS
     Dosage: FORM: ENTERIC COATED DRUG
     Route: 048
     Dates: start: 20090617, end: 20090910
  9. AZULFIDINE [Suspect]
     Route: 048
     Dates: start: 20090911
  10. PREDNISOLONE [Concomitant]
     Dosage: DRUG NAME: PREDOHAN
     Route: 048
  11. ONEALFA [Concomitant]
     Route: 048
  12. TAKEPRON [Concomitant]
     Route: 048

REACTIONS (1)
  - WHITE BLOOD CELL COUNT DECREASED [None]
